FAERS Safety Report 12766700 (Version 2)
Quarter: 2019Q4

REPORT INFORMATION
  Report Type: Spontaneous
  Country: US (occurrence: US)
  Receive Date: 20160921
  Receipt Date: 20191114
  Transmission Date: 20200122
  Serious: Yes (Other)
  Sender: FDA-Public Use
  Company Number: US-PFIZER INC-2016439819

PATIENT
  Age: 48 Year
  Sex: Male

DRUGS (7)
  1. CIALIS [Suspect]
     Active Substance: TADALAFIL
     Indication: ERECTILE DYSFUNCTION
     Dosage: UNK
     Route: 048
     Dates: start: 200508, end: 201010
  2. CIALIS [Suspect]
     Active Substance: TADALAFIL
     Dosage: 20 MG, 1X/DAY (AS NEEDED)
     Route: 048
     Dates: start: 20090601, end: 20110517
  3. CIALIS [Suspect]
     Active Substance: TADALAFIL
     Dosage: 20 MG, 1X/DAY (AS NEEDED)
     Route: 048
     Dates: start: 20050915, end: 20070716
  4. LORATADINE. [Concomitant]
     Active Substance: LORATADINE
     Indication: MULTIPLE ALLERGIES
     Dosage: UNK
     Dates: start: 1999
  5. VIAGRA [Suspect]
     Active Substance: SILDENAFIL CITRATE
     Dosage: 50 MG, 1X/DAY (AS NEEDED)
     Route: 048
     Dates: start: 20090410, end: 20101006
  6. VIAGRA [Suspect]
     Active Substance: SILDENAFIL CITRATE
     Indication: ERECTILE DYSFUNCTION
     Dosage: UNK, REGULARLY
     Route: 048
     Dates: start: 2009, end: 201105
  7. ATORVASTATIN [Concomitant]
     Active Substance: ATORVASTATIN
     Indication: BLOOD CHOLESTEROL ABNORMAL
     Dosage: UNK

REACTIONS (1)
  - Nodular melanoma [Unknown]

NARRATIVE: CASE EVENT DATE: 200907
